FAERS Safety Report 9669181 (Version 1)
Quarter: 2013Q4

REPORT INFORMATION
  Report Type: Spontaneous
  Country: MX (occurrence: MX)
  Receive Date: 20131105
  Receipt Date: 20131105
  Transmission Date: 20140711
  Serious: Yes (Other)
  Sender: FDA-Public Use
  Company Number: MX-SA-2013SA110478

PATIENT
  Age: 28 Year
  Sex: Male

DRUGS (3)
  1. LEFLUNOMIDE [Suspect]
     Indication: ARTHRITIS
     Route: 065
     Dates: end: 200903
  2. METHOTREXATE [Suspect]
     Indication: ARTHRITIS
     Route: 065
  3. PREDNISONE [Suspect]
     Indication: SCLERITIS
     Route: 065

REACTIONS (5)
  - Scleritis [Unknown]
  - Ocular hyperaemia [Unknown]
  - Eye pain [Unknown]
  - Liver injury [Unknown]
  - Mouth ulceration [Unknown]
